FAERS Safety Report 20948770 (Version 5)
Quarter: 2023Q2

REPORT INFORMATION
  Report Type: Spontaneous
  Country: PT (occurrence: PT)
  Receive Date: 20220612
  Receipt Date: 20230407
  Transmission Date: 20230721
  Serious: Yes (Hospitalization, Other)
  Sender: FDA-Public Use
  Company Number: PT-NOVARTISPH-NVSC2022PT130789

PATIENT
  Age: 67 Year
  Sex: Male

DRUGS (4)
  1. PEMETREXED [Suspect]
     Active Substance: PEMETREXED
     Indication: Lung adenocarcinoma
     Dosage: UNK UNK, CYCLIC
     Route: 065
  2. PEMETREXED [Suspect]
     Active Substance: PEMETREXED
     Dosage: UNK, CYCLIC
     Route: 065
  3. CARBOPLATIN [Suspect]
     Active Substance: CARBOPLATIN
     Indication: Lung adenocarcinoma
     Dosage: UNK
     Route: 065
  4. PEMBROLIZUMAB [Suspect]
     Active Substance: PEMBROLIZUMAB
     Indication: Lung adenocarcinoma stage IV
     Dosage: 200 MG, TIW (200 MILLIGRAM, EVERY 3 WEEKS)
     Route: 065

REACTIONS (8)
  - Tubulointerstitial nephritis [Recovered/Resolved]
  - Blood creatinine abnormal [Unknown]
  - Leukocyturia [Unknown]
  - Oedema peripheral [Unknown]
  - Malignant neoplasm progression [Unknown]
  - Decreased appetite [Unknown]
  - Asthenia [Unknown]
  - Drug ineffective [Unknown]

NARRATIVE: CASE EVENT DATE: 20210101
